FAERS Safety Report 5929375-9 (Version None)
Quarter: 2008Q4

REPORT INFORMATION
  Report Type: 
  Country: None (occurrence: None)
  Receive Date: 20081024
  Receipt Date: 20081017
  Transmission Date: 20090506
  Serious: Yes (Other)
  Sender: FDA-Public Use
  Company Number: DE-AMGEN-UK292407

PATIENT
  Sex: Female
  Weight: 87 kg

DRUGS (7)
  1. VECTIBIX [Suspect]
     Indication: COLORECTAL CANCER
     Route: 042
     Dates: start: 20080226
  2. UREA CREAM [Concomitant]
  3. METOPROLOL SUCCINATE [Concomitant]
     Route: 048
     Dates: start: 20050901
  4. AVASTIN [Concomitant]
     Dates: end: 20080423
  5. ERBITUX [Concomitant]
     Dates: end: 20080423
  6. VELCADE [Concomitant]
     Dates: start: 20080506
  7. MABTHERA [Concomitant]

REACTIONS (2)
  - NAIL BED INFLAMMATION [None]
  - PAIN IN EXTREMITY [None]
